FAERS Safety Report 4846150-7 (Version None)
Quarter: 2005Q4

REPORT INFORMATION
  Report Type: 
  Country: None (occurrence: None)
  Receive Date: 20051201
  Receipt Date: 20051121
  Transmission Date: 20060501
  Serious: Yes (Other)
  Sender: FDA-Public Use
  Company Number: 2005159711

PATIENT
  Age: 72 Year
  Sex: Female
  Weight: 78 kg

DRUGS (6)
  1. LYRICA [Suspect]
     Indication: ILL-DEFINED DISORDER
     Dosage: 150 MG (75 MG, 2 IN 1 D), ORAL
     Route: 048
     Dates: start: 20051107, end: 20051108
  2. RABEPRAZOLE SODIUM [Concomitant]
  3. SIMVASTATIN [Concomitant]
  4. QUININE SULFATE [Concomitant]
  5. ASPIRIN [Concomitant]
  6. DICLOFENAC SODIUM [Concomitant]

REACTIONS (4)
  - ABNORMAL BEHAVIOUR [None]
  - ANGER [None]
  - CONFUSIONAL STATE [None]
  - CRYING [None]
